FAERS Safety Report 22011754 (Version 3)
Quarter: 2023Q2

REPORT INFORMATION
  Report Type: Spontaneous
  Country: US (occurrence: US)
  Receive Date: 20230220
  Receipt Date: 20230501
  Transmission Date: 20230722
  Serious: Yes (Other)
  Sender: FDA-Public Use
  Company Number: US-BAYER-2023A017452

PATIENT
  Age: 31 Year
  Sex: Female
  Weight: 71 kg

DRUGS (1)
  1. MIRENA [Suspect]
     Active Substance: LEVONORGESTREL
     Indication: Contraception
     Dosage: 20?G/DAY
     Route: 015
     Dates: start: 20220215, end: 20221201

REACTIONS (4)
  - Vaginal haemorrhage [None]
  - Device dislocation [Recovered/Resolved]
  - Ovarian cyst [None]
  - Hypomenorrhoea [None]

NARRATIVE: CASE EVENT DATE: 20220406
